FAERS Safety Report 22299688 (Version 3)
Quarter: 2025Q1

REPORT INFORMATION
  Report Type: Spontaneous
  Country: US (occurrence: US)
  Receive Date: 20230509
  Receipt Date: 20250225
  Transmission Date: 20250409
  Serious: Yes (Other)
  Sender: AMGEN
  Company Number: US-AMGEN-USASP2023076137

PATIENT
  Sex: Male

DRUGS (1)
  1. REPATHA [Suspect]
     Active Substance: EVOLOCUMAB
     Indication: Product used for unknown indication
     Dosage: 140 MILLIGRAM, Q2WK
     Route: 065

REACTIONS (7)
  - Coronary artery bypass [Unknown]
  - Coronary arterial stent insertion [Unknown]
  - Arrhythmia [Unknown]
  - Low density lipoprotein abnormal [Unknown]
  - Anxiety [Unknown]
  - Alopecia [Unknown]
  - Influenza like illness [Unknown]
